FAERS Safety Report 13977731 (Version 2)
Quarter: 2017Q3

REPORT INFORMATION
  Report Type: Report from Study
  Country: US (occurrence: US)
  Receive Date: 20170915
  Receipt Date: 20170926
  Transmission Date: 20171128
  Serious: Yes (Hospitalization)
  Sender: FDA-Public Use
  Company Number: US-GILEAD-2017-0293359

PATIENT
  Age: 38 Year
  Sex: Female

DRUGS (2)
  1. AZTREONAM LYSINE [Suspect]
     Active Substance: AZTREONAM LYSINE
     Indication: CYSTIC FIBROSIS
     Dosage: 75 MG, UNK
     Route: 055
     Dates: start: 20150106, end: 20150409
  2. AZTREONAM LYSINE [Suspect]
     Active Substance: AZTREONAM LYSINE
     Indication: PSEUDOMONAS INFECTION

REACTIONS (2)
  - Off label use [Unknown]
  - Lung disorder [Unknown]

NARRATIVE: CASE EVENT DATE: 20170918
